FAERS Safety Report 8145725-X (Version None)
Quarter: 2012Q1

REPORT INFORMATION
  Report Type: 
  Country: None (occurrence: None)
  Receive Date: 20120217
  Receipt Date: 20120203
  Transmission Date: 20120608
  Serious: Yes (Other)
  Sender: FDA-Public Use
  Company Number: AT-UCBSA-051076

PATIENT
  Age: 40 Year
  Sex: Female
  Weight: 74 kg

DRUGS (4)
  1. NEUPRO [Suspect]
     Indication: PARKINSON'S DISEASE
     Route: 062
  2. NEUPRO [Suspect]
     Route: 062
  3. NEUPRO [Suspect]
     Route: 062
     Dates: end: 20120115
  4. NEUPRO [Suspect]
     Route: 062
     Dates: end: 20120115

REACTIONS (3)
  - BLISTER [None]
  - FEELING HOT [None]
  - PRURITUS [None]
